FAERS Safety Report 19951542 (Version 1)
Quarter: 2021Q4

REPORT INFORMATION
  Report Type: Spontaneous
  Country: ES (occurrence: ES)
  Receive Date: 20211014
  Receipt Date: 20211014
  Transmission Date: 20220303
  Serious: Yes (Hospitalization, Other)
  Sender: FDA-Public Use
  Company Number: ES-AEMPS-1015742

PATIENT
  Age: 71 Year
  Sex: Male

DRUGS (4)
  1. MEROPENEM [Suspect]
     Active Substance: MEROPENEM
     Indication: Product used for unknown indication
     Dosage: 1 GRAM, 3 TIMES A DAY
     Route: 042
     Dates: start: 20210308, end: 20210315
  2. FLUCONAZOLE [Suspect]
     Active Substance: FLUCONAZOLE
     Indication: Product used for unknown indication
     Dosage: 200 MILLIGRAM, ONCE A DAY
     Route: 042
     Dates: start: 20210314, end: 20210315
  3. AMBISOME [Suspect]
     Active Substance: AMPHOTERICIN B
     Indication: Product used for unknown indication
     Dosage: 24 MILLIGRAM, 72 HOURS
     Route: 042
     Dates: start: 20210314, end: 20210317
  4. COTRIMOXAZOLE [Suspect]
     Active Substance: SULFAMETHOXAZOLE\TRIMETHOPRIM
     Indication: Prophylaxis
     Dosage: 160 MILLIGRAM, ONCE A DAY
     Route: 042
     Dates: start: 20210314, end: 20210323

REACTIONS (2)
  - Hyperbilirubinaemia [Unknown]
  - Drug eruption [Unknown]

NARRATIVE: CASE EVENT DATE: 20210315
